FAERS Safety Report 9004811 (Version 1)
Quarter: 2013Q1

REPORT INFORMATION
  Report Type: Spontaneous
  Country: US (occurrence: US)
  Receive Date: 20130109
  Receipt Date: 20130109
  Transmission Date: 20140127
  Serious: Yes (Other)
  Sender: FDA-Public Use
  Company Number: US-BAYER-2013-001302

PATIENT
  Age: 77 Year
  Sex: Female
  Weight: 90.7 kg

DRUGS (4)
  1. ALEVE CAPLET/TABLET,MIDOL EXTENDED RELIEF CAPLET [Suspect]
     Indication: PAIN
     Dosage: 1 DF, BID
     Route: 048
  2. POTASSIUM [Concomitant]
  3. BUMETANIDE [Concomitant]
  4. DIOVAN [Concomitant]

REACTIONS (2)
  - Renal disorder [Unknown]
  - Incorrect drug administration duration [None]
